FAERS Safety Report 4781344-0 (Version None)
Quarter: 2005Q3

REPORT INFORMATION
  Report Type: 
  Country: None (occurrence: None)
  Receive Date: 20050928
  Receipt Date: 20050920
  Transmission Date: 20060218
  Serious: Yes (Hospitalization)
  Sender: FDA-Public Use
  Company Number: 2005AP05013

PATIENT
  Age: 55 Year
  Sex: Male

DRUGS (7)
  1. IRESSA [Suspect]
     Indication: LUNG NEOPLASM MALIGNANT
     Route: 048
     Dates: start: 20050724
  2. OLMETEC [Suspect]
     Route: 048
     Dates: start: 20050607, end: 20050816
  3. ACECOL [Suspect]
     Route: 048
     Dates: start: 20050607, end: 20050816
  4. CALBLOCK [Concomitant]
     Route: 048
     Dates: start: 20050606, end: 20050816
  5. MUCODYNE [Concomitant]
     Route: 048
     Dates: start: 20050620, end: 20050816
  6. CLEANAL [Concomitant]
     Route: 048
     Dates: start: 20050708, end: 20050816
  7. COLDRIN [Concomitant]
     Route: 048
     Dates: start: 20050620

REACTIONS (1)
  - RENAL FAILURE [None]
